FAERS Safety Report 5477075-4 (Version None)
Quarter: 2007Q4

REPORT INFORMATION
  Report Type: 
  Country: None (occurrence: None)
  Receive Date: 20071004
  Receipt Date: 20071001
  Transmission Date: 20080405
  Serious: Yes (Hospitalization, Other)
  Sender: FDA-Public Use
  Company Number: US-BRISTOL-MYERS SQUIBB COMPANY-13925326

PATIENT
  Age: 72 Year
  Sex: Female
  Weight: 62 kg

DRUGS (8)
  1. SPRYCEL [Suspect]
     Indication: CHRONIC MYELOID LEUKAEMIA
     Route: 048
     Dates: start: 20070927
  2. PROPANOL [Concomitant]
  3. DIOVAN [Concomitant]
  4. LEVAQUIN [Concomitant]
  5. DIFLUCAN [Concomitant]
  6. ALLOPURINOL [Concomitant]
  7. AMITRIPTYLINE HCL [Concomitant]
  8. APRESOLINE [Concomitant]

REACTIONS (1)
  - ATRIOVENTRICULAR BLOCK COMPLETE [None]
